FAERS Safety Report 8552592-9 (Version None)
Quarter: 2012Q3

REPORT INFORMATION
  Report Type: 
  Country: None (occurrence: None)
  Receive Date: 20120718
  Receipt Date: 20120716
  Transmission Date: 20120928
  Serious: Yes (Other)
  Sender: FDA-Public Use
  Company Number: 2012AT000392

PATIENT
  Sex: Male

DRUGS (1)
  1. TESTOPEL [Suspect]
     Indication: PRODUCT USED FOR UNKNOWN INDICATION
     Dosage: 600 MG

REACTIONS (5)
  - PAIN [None]
  - IMPLANT SITE REACTION [None]
  - INFECTION [None]
  - SWELLING [None]
  - ERYTHEMA [None]
